FAERS Safety Report 16947390 (Version 3)
Quarter: 2019Q4

REPORT INFORMATION
  Report Type: Spontaneous
  Country: US (occurrence: US)
  Receive Date: 20191022
  Receipt Date: 20191104
  Transmission Date: 20200122
  Serious: Yes (Hospitalization, Other)
  Sender: FDA-Public Use
  Company Number: US-SHIRE-US201934539

PATIENT
  Sex: Female
  Weight: 56.19 kg

DRUGS (1)
  1. GATTEX [Suspect]
     Active Substance: TEDUGLUTIDE\WATER
     Indication: SHORT-BOWEL SYNDROME
     Dosage: 0.3 MILLILITER, 1X/DAY:QD
     Route: 058

REACTIONS (3)
  - Syringe issue [Unknown]
  - Diarrhoea [Not Recovered/Not Resolved]
  - Pneumonia [Unknown]
